FAERS Safety Report 8844583 (Version 1)
Quarter: 2012Q4

REPORT INFORMATION
  Report Type: 
  Country: US (occurrence: None)
  Receive Date: 20121016
  Receipt Date: 20121016
  Transmission Date: 20130627
  Serious: Yes (Hospitalization)
  Sender: FDA-Public Use
  Company Number: None

PATIENT
  Age: 76 Year
  Sex: Female
  Weight: 76 kg

DRUGS (8)
  1. MOTRIN [Suspect]
     Dosage: chronic, 400 mg x2 qh6 prn po
     Route: 048
  2. PRADAXA [Suspect]
     Indication: ATRIAL FIBRILLATION
     Dosage: recent
     Route: 048
  3. CYMBALTA [Concomitant]
  4. BYETTA [Concomitant]
  5. CRESTOR [Concomitant]
  6. VERAPAMIL [Concomitant]
  7. AMIODARONE [Concomitant]
  8. LAXATIVE [Concomitant]

REACTIONS (7)
  - Haemorrhagic anaemia [None]
  - Gastrointestinal haemorrhage [None]
  - Gastritis [None]
  - Diverticulum [None]
  - Polyp [None]
  - Haemorrhoids [None]
  - Post procedural complication [None]
